FAERS Safety Report 24776559 (Version 1)
Quarter: 2024Q4

REPORT INFORMATION
  Report Type: Report from Study
  Country: US (occurrence: US)
  Receive Date: 20241226
  Receipt Date: 20241226
  Transmission Date: 20250115
  Serious: Yes (Hospitalization)
  Sender: ROCHE
  Company Number: US-ROCHE-10000140606

PATIENT
  Age: 43 Year
  Sex: Female
  Weight: 79.37 kg

DRUGS (11)
  1. OCREVUS [Suspect]
     Active Substance: OCRELIZUMAB
     Indication: Relapsing multiple sclerosis
     Route: 042
     Dates: start: 2019
  2. KETAMINE [Suspect]
     Active Substance: KETAMINE
     Indication: Trigeminal neuralgia
     Route: 042
     Dates: start: 202409
  3. LIDOCAINE [Suspect]
     Active Substance: LIDOCAINE
     Indication: Trigeminal neuralgia
     Route: 042
     Dates: start: 202409
  4. METHOCARBAMOL [Concomitant]
     Active Substance: METHOCARBAMOL
     Indication: Muscle relaxant therapy
     Route: 048
  5. BACLOFEN [Concomitant]
     Active Substance: BACLOFEN
     Indication: Muscle spasms
     Route: 048
  6. PREDNISONE [Concomitant]
     Active Substance: PREDNISONE
     Indication: Multiple sclerosis
     Route: 048
  7. GABAPENTIN [Concomitant]
     Active Substance: GABAPENTIN
     Indication: Pain
     Route: 048
  8. PROZAC [Concomitant]
     Active Substance: FLUOXETINE HYDROCHLORIDE
     Indication: Anxiety
     Route: 048
  9. PROZAC [Concomitant]
     Active Substance: FLUOXETINE HYDROCHLORIDE
     Indication: Depression
  10. PROPRANOLOL [Concomitant]
     Active Substance: PROPRANOLOL HYDROCHLORIDE
     Indication: Hypertension
     Route: 048
  11. TOPIRAMATE [Concomitant]
     Active Substance: TOPIRAMATE
     Indication: Migraine
     Route: 048

REACTIONS (7)
  - Feeling hot [Recovered/Resolved]
  - Cold sweat [Recovered/Resolved]
  - Panic attack [Not Recovered/Not Resolved]
  - Gait disturbance [Recovering/Resolving]
  - Hallucination [Recovered/Resolved]
  - Trigeminal neuralgia [Recovered/Resolved]
  - Fall [Unknown]

NARRATIVE: CASE EVENT DATE: 20240901
